FAERS Safety Report 13754797 (Version 2)
Quarter: 2017Q3

REPORT INFORMATION
  Report Type: Spontaneous
  Country: US (occurrence: US)
  Receive Date: 20170714
  Receipt Date: 20170801
  Transmission Date: 20171127
  Serious: No
  Sender: FDA-Public Use
  Company Number: US-009507513-1707USA002426

PATIENT
  Age: 24 Year
  Sex: Female
  Weight: 64.4 kg

DRUGS (1)
  1. NEXPLANON [Suspect]
     Active Substance: ETONOGESTREL
     Indication: CONTRACEPTION
     Dosage: 1 DF, 1 EVERY 3 YEARS
     Route: 059
     Dates: start: 20170602

REACTIONS (4)
  - Complication of device insertion [Recovered/Resolved]
  - Product quality issue [Recovered/Resolved]
  - Implant site pain [Unknown]
  - Device kink [Not Recovered/Not Resolved]

NARRATIVE: CASE EVENT DATE: 20170602
